FAERS Safety Report 5810894-0 (Version None)
Quarter: 2008Q3

REPORT INFORMATION
  Report Type: 
  Country: None (occurrence: None)
  Receive Date: 20080716
  Receipt Date: 20080703
  Transmission Date: 20090109
  Serious: Yes (Hospitalization, Other)
  Sender: FDA-Public Use
  Company Number: PHEH2008US05973

PATIENT
  Sex: Female

DRUGS (5)
  1. GLEEVEC [Interacting]
     Indication: CHRONIC MYELOID LEUKAEMIA
     Dosage: 400 MG, QD
     Dates: start: 20080101, end: 20080201
  2. GLEEVEC [Interacting]
     Dosage: 200 MG, QD
     Dates: start: 20080301
  3. TASIGNA [Suspect]
     Dosage: 200 MG, QD
     Dates: end: 20080501
  4. EFFEXOR [Interacting]
  5. INSULIN [Concomitant]
     Indication: DIABETES MELLITUS

REACTIONS (5)
  - DRUG INTERACTION [None]
  - EYE HAEMORRHAGE [None]
  - PAIN IN EXTREMITY [None]
  - RETINAL DETACHMENT [None]
  - VISUAL ACUITY REDUCED [None]
